FAERS Safety Report 7427397-2 (Version None)
Quarter: 2011Q2

REPORT INFORMATION
  Report Type: 
  Country: None (occurrence: None)
  Receive Date: 20110420
  Receipt Date: 20110325
  Transmission Date: 20111010
  Serious: No
  Sender: FDA-Public Use
  Company Number: US-B.I. PHARMACEUTICALS,INC./RIDGEFIELD-2011-BP-09509BP

PATIENT
  Weight: 131.54 kg

DRUGS (1)
  1. PRADAXA [Suspect]
     Route: 048
     Dates: start: 20110101

REACTIONS (1)
  - ACTIVATED PARTIAL THROMBOPLASTIN TIME SHORTENED [None]
